FAERS Safety Report 5837613-6 (Version None)
Quarter: 2008Q3

REPORT INFORMATION
  Report Type: 
  Country: None (occurrence: None)
  Receive Date: 20080807
  Receipt Date: 20080730
  Transmission Date: 20090109
  Serious: Yes (Other)
  Sender: FDA-Public Use
  Company Number: PHHY2008IE14474

PATIENT
  Sex: Male

DRUGS (5)
  1. CLOZARIL [Suspect]
     Indication: SCHIZOPHRENIA
     Dosage: UNK
     Dates: start: 20080506, end: 20080618
  2. SOLIAN [Concomitant]
  3. FLURAZEPAM [Concomitant]
     Indication: INSOMNIA
     Dosage: 15 MG/DAY
     Dates: start: 20080414
  4. VALIUM [Concomitant]
     Indication: ANXIETY
     Dosage: 10 MG/DAY
     Dates: start: 20080414
  5. TOLTERODINE TARTRATE [Concomitant]
     Indication: URINARY TRACT INFECTION
     Dosage: 4 MG/DAY
     Dates: start: 20080527

REACTIONS (11)
  - BENIGN PROSTATIC HYPERPLASIA [None]
  - DROOLING [None]
  - FATIGUE [None]
  - LARYNGITIS [None]
  - PHARYNGITIS [None]
  - SALIVARY HYPERSECRETION [None]
  - SEDATION [None]
  - TONSILLITIS [None]
  - URINARY INCONTINENCE [None]
  - URINARY RETENTION [None]
  - URINARY TRACT INFECTION [None]
